FAERS Safety Report 10615261 (Version 1)
Quarter: 2014Q4

REPORT INFORMATION
  Report Type: Spontaneous
  Country: US (occurrence: None)
  Receive Date: 20141125
  Receipt Date: 20141125
  Transmission Date: 20150529
  Serious: Yes (Other)
  Sender: FDA-Public Use
  Company Number: None

PATIENT
  Age: 53 Year
  Sex: Male

DRUGS (1)
  1. EXJADE [Suspect]
     Active Substance: DEFERASIROX
     Indication: ACUTE MYELOID LEUKAEMIA
     Route: 048
     Dates: start: 20140922, end: 20141121

REACTIONS (3)
  - Headache [None]
  - Diarrhoea [None]
  - Visual impairment [None]

NARRATIVE: CASE EVENT DATE: 20141121
